FAERS Safety Report 18114683 (Version 1)
Quarter: 2020Q3

REPORT INFORMATION
  Report Type: Spontaneous
  Country: AU (occurrence: AU)
  Receive Date: 20200805
  Receipt Date: 20200805
  Transmission Date: 20201103
  Serious: Yes (Other)
  Sender: FDA-Public Use
  Company Number: AU-ROCHE-2605014

PATIENT
  Age: 63 Year
  Sex: Male

DRUGS (1)
  1. OBINUTUZUMAB. [Suspect]
     Active Substance: OBINUTUZUMAB
     Indication: CHRONIC MYELOID LEUKAEMIA
     Route: 042
     Dates: start: 20180430, end: 20180430

REACTIONS (5)
  - Pulse abnormal [Recovered/Resolved]
  - Intentional product use issue [Unknown]
  - Chest discomfort [Recovered/Resolved]
  - Off label use [Unknown]
  - Sinus tachycardia [Recovered/Resolved]

NARRATIVE: CASE EVENT DATE: 20180430
